FAERS Safety Report 9929074 (Version 5)
Quarter: 2015Q1

REPORT INFORMATION
  Report Type: Spontaneous
  Country: JP (occurrence: JP)
  Receive Date: 20140227
  Receipt Date: 20150219
  Transmission Date: 20150721
  Serious: Yes (Life-Threatening, Hospitalization)
  Sender: FDA-Public Use
  Company Number: JP-PFIZER INC-2014055697

PATIENT
  Age: 69 Year
  Sex: Female

DRUGS (16)
  1. ZYPREXA [Suspect]
     Active Substance: OLANZAPINE
     Dosage: UNK
     Route: 048
     Dates: start: 20130330
  2. CONIEL [Suspect]
     Active Substance: BENIDIPINE HYDROCHLORIDE
     Indication: HYPERTENSION
     Dosage: 20 DF, 1X/DAY
     Route: 048
     Dates: start: 20130422, end: 20130422
  3. CYMBALTA [Suspect]
     Active Substance: DULOXETINE HYDROCHLORIDE
     Dosage: UNK
     Route: 048
     Dates: start: 20130330
  4. LIPITOR [Suspect]
     Active Substance: ATORVASTATIN CALCIUM
     Indication: HYPERLIPIDAEMIA
     Dosage: 12 DF, 1X/DAY
     Route: 048
     Dates: start: 20130422, end: 20130422
  5. SIGMART [Suspect]
     Active Substance: NICORANDIL
     Dosage: 240 MG, 1X/DAY
     Route: 048
     Dates: start: 20130422, end: 20130422
  6. ZYPREXA [Suspect]
     Active Substance: OLANZAPINE
     Indication: DEPRESSION
     Dosage: 1 TABLET, SINGLE
     Route: 048
     Dates: start: 20130422, end: 20130422
  7. CYMBALTA [Suspect]
     Active Substance: DULOXETINE HYDROCHLORIDE
     Indication: DEPRESSION
     Dosage: 560 MG, 1X/DAY
     Route: 048
     Dates: start: 20130422, end: 20130422
  8. LIPITOR [Suspect]
     Active Substance: ATORVASTATIN CALCIUM
     Dosage: UNK
  9. SEROQUEL [Suspect]
     Active Substance: QUETIAPINE FUMARATE
     Dosage: UNK
  10. MYSLEE [Suspect]
     Active Substance: ZOLPIDEM TARTRATE
     Dosage: UNK
     Route: 048
     Dates: start: 20130330
  11. GASTER [Suspect]
     Active Substance: FAMOTIDINE
     Dosage: 200 MG, DAILY
     Route: 048
     Dates: start: 20130422, end: 20130422
  12. CONIEL [Suspect]
     Active Substance: BENIDIPINE HYDROCHLORIDE
     Dosage: UNK
     Route: 048
  13. DEPAS [Concomitant]
     Active Substance: ETIZOLAM
     Dosage: UNK
     Route: 048
     Dates: start: 20130330
  14. SEROQUEL [Suspect]
     Active Substance: QUETIAPINE FUMARATE
     Indication: DEPRESSION
     Dosage: 700 MG, 1X/DAY
     Route: 048
     Dates: start: 20130422, end: 20130422
  15. MYSLEE [Suspect]
     Active Substance: ZOLPIDEM TARTRATE
     Indication: DEPRESSION
     Dosage: 32 TABLETS
     Route: 048
     Dates: start: 20130422, end: 20130422
  16. BALDEKEN-R [Suspect]
     Active Substance: VALPROIC ACID
     Dosage: 5600 MG, DAILY
     Route: 048
     Dates: start: 20130422, end: 20130422

REACTIONS (2)
  - Toxicity to various agents [Recovered/Resolved]
  - Intentional overdose [Recovered/Resolved]

NARRATIVE: CASE EVENT DATE: 20130422
